FAERS Safety Report 16071707 (Version 1)
Quarter: 2019Q1

REPORT INFORMATION
  Report Type: Spontaneous
  Country: US (occurrence: US)
  Receive Date: 20190314
  Receipt Date: 20190314
  Transmission Date: 20190418
  Serious: No
  Sender: FDA-Public Use
  Company Number: US-AMGEN-USASP2019035489

PATIENT
  Age: 67 Year
  Sex: Female

DRUGS (2)
  1. REPATHA [Suspect]
     Active Substance: EVOLOCUMAB
     Indication: PRODUCT USED FOR UNKNOWN INDICATION
     Dosage: 140 MG, Q2WK
     Route: 065
     Dates: start: 201810
  2. REPATHA [Suspect]
     Active Substance: EVOLOCUMAB
     Dosage: 420 MG, QMO
     Route: 065
     Dates: start: 20190303

REACTIONS (7)
  - Pruritus [Not Recovered/Not Resolved]
  - Injection site swelling [Unknown]
  - Irritable bowel syndrome [Unknown]
  - Injection site discomfort [Unknown]
  - Injection site warmth [Unknown]
  - Injection site erythema [Unknown]
  - Rash [Unknown]

NARRATIVE: CASE EVENT DATE: 201810
